FAERS Safety Report 7769172-5 (Version None)
Quarter: 2011Q3

REPORT INFORMATION
  Report Type: 
  Country: None (occurrence: None)
  Receive Date: 20110922
  Receipt Date: 20110912
  Transmission Date: 20111222
  Serious: Yes (Hospitalization, Disabling)
  Sender: FDA-Public Use
  Company Number: US-ROCHE-739891

PATIENT
  Sex: Female
  Weight: 74.7 kg

DRUGS (3)
  1. LAPATINIB [Suspect]
     Indication: BREAST CANCER
     Dosage: 1250 MG, QD
     Route: 048
     Dates: start: 20101015, end: 20101031
  2. LAPATINIB [Suspect]
     Dosage: 1250 MG, QD
     Route: 048
     Dates: start: 20101015, end: 20101031
  3. CAPECITABINE [Suspect]
     Indication: BREAST CANCER
     Dosage: 900 MG, BID. THERAPY DURATION: 3 DOSES
     Route: 048
     Dates: start: 20101015

REACTIONS (1)
  - AGITATION [None]
